FAERS Safety Report 8081604-4 (Version None)
Quarter: 2012Q1

REPORT INFORMATION
  Report Type: 
  Country: None (occurrence: None)
  Receive Date: 20120130
  Receipt Date: 20120121
  Transmission Date: 20120608
  Serious: Yes (Other)
  Sender: FDA-Public Use
  Company Number: CHPA2012US001818

PATIENT
  Age: 64 Year
  Sex: Female

DRUGS (2)
  1. THYROID [Concomitant]
     Dosage: UNK
  2. EXCEDRIN EXTRA STRENGTH TABLETS [Suspect]
     Indication: HEADACHE
     Dosage: 2 DF, PRN
     Route: 048
     Dates: end: 20120120

REACTIONS (10)
  - HEADACHE [None]
  - DEPRESSED MOOD [None]
  - IRRITABLE BOWEL SYNDROME [None]
  - FIBROMYALGIA [None]
  - FATIGUE [None]
  - RASH [None]
  - AUTOIMMUNE THYROIDITIS [None]
  - MIGRAINE [None]
  - GASTRIC DISORDER [None]
  - ERYTHEMA [None]
